FAERS Safety Report 10365492 (Version 2)
Quarter: 2014Q3

REPORT INFORMATION
  Report Type: Spontaneous
  Country: US (occurrence: None)
  Receive Date: 20140804
  Receipt Date: 20140911
  Transmission Date: 20150326
  Serious: Yes (Hospitalization, Other)
  Sender: FDA-Public Use
  Company Number: AMAG201400271

PATIENT
  Age: 84 Year
  Sex: Male

DRUGS (1)
  1. FERAHEME [Suspect]
     Active Substance: FERUMOXYTOL NON-STOICHIOMETRIC MAGNETITE
     Route: 042
     Dates: start: 20140708

REACTIONS (4)
  - Respiratory failure [None]
  - Respiratory distress [None]
  - Cognitive disorder [None]
  - Respiratory arrest [None]

NARRATIVE: CASE EVENT DATE: 20140708
